FAERS Safety Report 20915560 (Version 3)
Quarter: 2023Q2

REPORT INFORMATION
  Report Type: Spontaneous
  Country: US (occurrence: US)
  Receive Date: 20220604
  Receipt Date: 20230612
  Transmission Date: 20230722
  Serious: Yes (Other)
  Sender: FDA-Public Use
  Company Number: US-SA-SAC20220526000496

PATIENT
  Age: 73 Year
  Sex: Male

DRUGS (1)
  1. DUPIXENT [Suspect]
     Active Substance: DUPILUMAB
     Indication: Dermatitis atopic
     Dosage: 300 MG, QOW
     Route: 058
     Dates: start: 20211207

REACTIONS (14)
  - Cataract [Unknown]
  - Eye infection [Not Recovered/Not Resolved]
  - Lacrimation increased [Not Recovered/Not Resolved]
  - Vision blurred [Not Recovered/Not Resolved]
  - Floppy eyelid syndrome [Unknown]
  - Eye pain [Unknown]
  - Skin fissures [Recovering/Resolving]
  - Dry skin [Recovering/Resolving]
  - Eye swelling [Unknown]
  - Ocular hyperaemia [Unknown]
  - Rash [Recovering/Resolving]
  - Eye pruritus [Not Recovered/Not Resolved]
  - Dry eye [Unknown]
  - Conjunctivitis [Unknown]
